FAERS Safety Report 8767456 (Version 4)
Quarter: 2012Q4

REPORT INFORMATION
  Report Type: 
  Country: GB (occurrence: GB)
  Receive Date: 20120904
  Receipt Date: 20121015
  Transmission Date: 20130627
  Serious: Yes (Hospitalization)
  Sender: FDA-Public Use
  Company Number: GB-RANBAXY-2012R1-59533

PATIENT
  Age: 39 Year
  Sex: Male

DRUGS (11)
  1. DICLOFENAC [Suspect]
     Indication: MUSCULOSKELETAL PAIN
     Dosage: UNK
     Route: 048
     Dates: start: 20120703, end: 20120726
  2. FLUOXETINE [Suspect]
     Indication: DEPRESSION
     Dosage: UNK
     Route: 048
  3. FERROUS SULPHATE [Concomitant]
     Indication: PRODUCT USED FOR UNKNOWN INDICATION
     Dosage: UNK
     Route: 065
  4. LANSOPRAZOLE [Concomitant]
     Indication: PRODUCT USED FOR UNKNOWN INDICATION
     Dosage: UNK
     Route: 065
  5. METHADONE [Concomitant]
     Indication: PRODUCT USED FOR UNKNOWN INDICATION
     Dosage: UNK
     Route: 065
  6. PARACETAMOL [Concomitant]
     Indication: PRODUCT USED FOR UNKNOWN INDICATION
     Dosage: UNK
     Route: 065
  7. PREGABALIN [Concomitant]
     Indication: PRODUCT USED FOR UNKNOWN INDICATION
     Dosage: UNK
     Route: 065
  8. SALBUTAMOL [Concomitant]
     Indication: PRODUCT USED FOR UNKNOWN INDICATION
     Dosage: UNK
     Route: 065
  9. SERETIDE [Concomitant]
     Indication: PRODUCT USED FOR UNKNOWN INDICATION
     Dosage: UNK
     Route: 065
  10. THIAMINE [Concomitant]
     Indication: PRODUCT USED FOR UNKNOWN INDICATION
     Dosage: UNK
     Route: 065
  11. TRAMADOL [Concomitant]
     Indication: PRODUCT USED FOR UNKNOWN INDICATION
     Dosage: UNK
     Route: 065

REACTIONS (5)
  - Oesophageal varices haemorrhage [Recovering/Resolving]
  - Gastrointestinal haemorrhage [Recovering/Resolving]
  - Haematemesis [Recovering/Resolving]
  - Melaena [Recovering/Resolving]
  - Faeces discoloured [Recovering/Resolving]
